FAERS Safety Report 25102816 (Version 1)
Quarter: 2025Q1

REPORT INFORMATION
  Report Type: Spontaneous
  Country: US (occurrence: US)
  Receive Date: 20250321
  Receipt Date: 20250321
  Transmission Date: 20250409
  Serious: Yes (Hospitalization, Other)
  Sender: GRAVITI PHARMACEUTICALS PRIVATE LIMITED
  Company Number: US-GRAVITIPHARMA-GRA-2503-US-LIT-0134

PATIENT
  Age: 32 Year
  Sex: Male

DRUGS (1)
  1. BUPROPION [Suspect]
     Active Substance: BUPROPION
     Indication: Product used for unknown indication
     Route: 065

REACTIONS (6)
  - Cardiotoxicity [Unknown]
  - Ventricular tachycardia [Unknown]
  - Shock [Unknown]
  - Generalised tonic-clonic seizure [Unknown]
  - Toxicity to various agents [Unknown]
  - Overdose [Unknown]
